FAERS Safety Report 5352582-3 (Version None)
Quarter: 2007Q2

REPORT INFORMATION
  Report Type: 
  Country: None (occurrence: None)
  Receive Date: 20070518
  Receipt Date: 20060706
  Transmission Date: 20071010
  Serious: Yes (Hospitalization)
  Sender: FDA-Public Use
  Company Number: Q06-031

PATIENT
  Age: 74 Year
  Sex: Male

DRUGS (2)
  1. SAMARIUM [Suspect]
     Indication: PROSTATE CANCER
     Dosage: 0.5 MCI/KG
     Dates: start: 20030206, end: 20030206
  2. ZOMETA [Suspect]
     Dosage: 4 MG QMOS
     Dates: start: 20030207, end: 20030701

REACTIONS (1)
  - UROSEPSIS [None]
